FAERS Safety Report 19476683 (Version 2)
Quarter: 2023Q2

REPORT INFORMATION
  Report Type: Spontaneous
  Country: PL (occurrence: PL)
  Receive Date: 20210630
  Receipt Date: 20230518
  Transmission Date: 20230722
  Serious: Yes (Hospitalization, Other)
  Sender: FDA-Public Use
  Company Number: PL-NOVARTISPH-NVSC2021PL145247

PATIENT
  Age: 9 Year
  Sex: Male

DRUGS (14)
  1. AMOXICILLIN\CLAVULANIC ACID [Suspect]
     Active Substance: AMOXICILLIN\CLAVULANIC ACID
     Indication: Henoch-Schonlein purpura
     Dosage: UNK
     Route: 065
  2. AMOXICILLIN\CLAVULANIC ACID [Suspect]
     Active Substance: AMOXICILLIN\CLAVULANIC ACID
     Indication: Antibiotic therapy
  3. ONDANSETRON [Suspect]
     Active Substance: ONDANSETRON
     Indication: Henoch-Schonlein purpura
     Dosage: UNK
     Route: 065
  4. ONDANSETRON [Suspect]
     Active Substance: ONDANSETRON
     Indication: Antibiotic therapy
  5. IBUPROFEN [Suspect]
     Active Substance: IBUPROFEN
     Indication: Henoch-Schonlein purpura
     Dosage: UNK
     Route: 065
  6. IBUPROFEN [Suspect]
     Active Substance: IBUPROFEN
     Indication: Antibiotic therapy
  7. ETHAMSYLATE [Suspect]
     Active Substance: ETHAMSYLATE
     Indication: Henoch-Schonlein purpura
     Dosage: UNK
     Route: 065
  8. ETHAMSYLATE [Suspect]
     Active Substance: ETHAMSYLATE
     Indication: Antibiotic therapy
  9. ASCORBIC ACID [Suspect]
     Active Substance: ASCORBIC ACID
     Indication: Henoch-Schonlein purpura
     Dosage: UNK
     Route: 065
  10. ASCORBIC ACID [Suspect]
     Active Substance: ASCORBIC ACID
     Indication: Antibiotic therapy
  11. RUTIN [Suspect]
     Active Substance: RUTIN
     Indication: Henoch-Schonlein purpura
     Dosage: UNK
     Route: 065
  12. RUTIN [Suspect]
     Active Substance: RUTIN
     Indication: Antibiotic therapy
  13. PROBIOTICS NOS [Concomitant]
     Active Substance: PROBIOTICS NOS
     Indication: Antibiotic therapy
     Dosage: UNK
     Route: 065
  14. HYDROCORTISONE [Concomitant]
     Active Substance: HYDROCORTISONE
     Indication: Steroid therapy
     Dosage: 10 MG/KG, QD
     Route: 065

REACTIONS (3)
  - Gastrointestinal inflammation [Unknown]
  - Diarrhoea haemorrhagic [Unknown]
  - Drug ineffective for unapproved indication [Unknown]
